FAERS Safety Report 22724789 (Version 8)
Quarter: 2024Q1

REPORT INFORMATION
  Report Type: Report from Study
  Country: US (occurrence: US)
  Receive Date: 20230719
  Receipt Date: 20240120
  Transmission Date: 20240410
  Serious: No
  Sender: FDA-Public Use
  Company Number: US-002147023-NVSC2023US159271

PATIENT
  Age: 35 Year
  Sex: Female
  Weight: 70.295 kg

DRUGS (2)
  1. COSENTYX [Suspect]
     Active Substance: SECUKINUMAB
     Indication: Psoriasis
     Dosage: UNK
     Route: 065
     Dates: start: 20230101, end: 20230110
  2. COSENTYX [Suspect]
     Active Substance: SECUKINUMAB
     Dosage: 300 MG, QMO
     Route: 030
     Dates: start: 2023

REACTIONS (7)
  - Product dose omission issue [Unknown]
  - Pyrexia [Unknown]
  - Abdominal discomfort [Unknown]
  - Skin infection [Unknown]
  - Psoriasis [Unknown]
  - Vomiting [Not Recovered/Not Resolved]
  - Pharyngeal swelling [Not Recovered/Not Resolved]

NARRATIVE: CASE EVENT DATE: 20230601
